FAERS Safety Report 9093786 (Version 1)
Quarter: 2013Q1

REPORT INFORMATION
  Report Type: Spontaneous
  Country: US (occurrence: None)
  Receive Date: 20130214
  Receipt Date: 20130214
  Transmission Date: 20140127
  Serious: Yes (Other)
  Sender: FDA-Public Use
  Company Number: None

PATIENT
  Age: 17 Year
  Sex: Female
  Weight: 48.7 kg

DRUGS (1)
  1. SUCRALFATE, 1GM TAB, WATSON PHARM [Suspect]
     Indication: GASTRIC ULCER
     Dosage: LET
     Route: 048
     Dates: start: 201212, end: 201302

REACTIONS (2)
  - Nausea [None]
  - Malaise [None]
